FAERS Safety Report 24646147 (Version 1)
Quarter: 2024Q4

REPORT INFORMATION
  Report Type: Spontaneous
  Country: US (occurrence: US)
  Receive Date: 20241121
  Receipt Date: 20241121
  Transmission Date: 20250114
  Serious: No
  Sender: COLLEGIUM PHARMACEUTICAL
  Company Number: US-COLLEGIUM PHARMACEUTICAL, INC.-20241000798

PATIENT

DRUGS (22)
  1. BELBUCA [Suspect]
     Active Substance: BUPRENORPHINE HYDROCHLORIDE
     Indication: Pain
     Dosage: 150 MICROGRAM, BID
     Route: 002
  2. BELBUCA [Suspect]
     Active Substance: BUPRENORPHINE HYDROCHLORIDE
     Dosage: 300 MICROGRAM, BID
     Route: 002
     Dates: start: 20240906, end: 20240927
  3. BELBUCA [Suspect]
     Active Substance: BUPRENORPHINE HYDROCHLORIDE
     Dosage: 450 MICROGRAM, BID
     Route: 002
     Dates: start: 20240928
  4. GABAPENTIN [Concomitant]
     Active Substance: GABAPENTIN
     Indication: Neuralgia
     Dosage: 600 MILLIGRAM, TID
     Route: 065
  5. ZONISAMIDE [Concomitant]
     Active Substance: ZONISAMIDE
     Indication: Supplementation therapy
     Dosage: 100 MILLIGRAM, QID
     Route: 065
  6. QUETIAPINE [Concomitant]
     Active Substance: QUETIAPINE
     Indication: Sleep disorder
     Dosage: 400 MILLIGRAM, QD
     Route: 065
  7. HYDROCHLOROTHIAZIDE\LISINOPRIL [Concomitant]
     Active Substance: HYDROCHLOROTHIAZIDE\LISINOPRIL
     Indication: Hypertension
     Dosage: 20 12.5 (1/2 TAB AM)
     Route: 065
  8. METFORMIN HYDROCHLORIDE [Concomitant]
     Active Substance: METFORMIN HYDROCHLORIDE
     Indication: Tuberculosis
     Dosage: 500 MILLIGRAM, BID
     Route: 065
  9. CELEBREX [Concomitant]
     Active Substance: CELECOXIB
     Indication: Arthralgia
     Dosage: 200 MILLIGRAM, QD
     Route: 065
  10. MYRBETRIQ [Concomitant]
     Active Substance: MIRABEGRON
     Indication: Prostatic disorder
     Dosage: 50 MILLIGRAM, QD
     Route: 065
  11. MIRTAZAPINE [Concomitant]
     Active Substance: MIRTAZAPINE
     Indication: Sleep disorder
     Dosage: 50 MILLIGRAM, QD
     Route: 065
  12. MIRTAZAPINE [Concomitant]
     Active Substance: MIRTAZAPINE
     Indication: Depression
  13. DULOXETINE HYDROCHLORIDE [Concomitant]
     Active Substance: DULOXETINE HYDROCHLORIDE
     Indication: Depression
     Dosage: 90 MILLIGRAM, QD
     Route: 065
  14. Solifenacin abz [Concomitant]
     Indication: Prostatic disorder
     Dosage: 10 MILLIGRAM, QD
     Route: 065
  15. ROSUVASTATIN CALCIUM [Concomitant]
     Active Substance: ROSUVASTATIN CALCIUM
     Indication: Blood cholesterol increased
     Dosage: 10 MILLIGRAM, QD
     Route: 065
  16. TLANDO [Concomitant]
     Active Substance: TESTOSTERONE UNDECANOATE
     Indication: Product used for unknown indication
     Dosage: 112.5 MILLIGRAM, BID
     Route: 065
  17. CLONAZEPAM [Concomitant]
     Active Substance: CLONAZEPAM
     Indication: Panic attack
     Dosage: 1 MILLIGRAM, PRN
     Route: 065
  18. CLONAZEPAM [Concomitant]
     Active Substance: CLONAZEPAM
     Indication: Anxiety
  19. UNSPECIFIED INGREDIENT [Concomitant]
     Active Substance: UNSPECIFIED INGREDIENT
     Indication: Product used for unknown indication
     Dosage: 5%, 1 DROP EACH, BID
  20. Levita [Concomitant]
     Indication: Product used for unknown indication
     Dosage: 20 MILLIGRAM, PRN
     Route: 065
  21. ZINC [Concomitant]
     Active Substance: ZINC
     Indication: Product used for unknown indication
     Dosage: UNK, UNKNOWN
     Route: 065
  22. VITAMIN D3 [Concomitant]
     Active Substance: CHOLECALCIFEROL
     Indication: Vitamin supplementation
     Dosage: UNK, UNKNOWN
     Route: 065

REACTIONS (3)
  - Product use complaint [Unknown]
  - Product solubility abnormal [Unknown]
  - Product adhesion issue [Unknown]

NARRATIVE: CASE EVENT DATE: 20240101
